FAERS Safety Report 7804549-0 (Version None)
Quarter: 2011Q4

REPORT INFORMATION
  Report Type: 
  Country: None (occurrence: None)
  Receive Date: 20111010
  Receipt Date: 20110927
  Transmission Date: 20120403
  Serious: No
  Sender: FDA-Public Use
  Company Number: US-BAYER-2011-006913

PATIENT
  Sex: Female
  Weight: 86.168 kg

DRUGS (2)
  1. YASMIN [Suspect]
     Dosage: UNK
     Dates: start: 20070102
  2. NAPROXEN (ALEVE) [Concomitant]

REACTIONS (8)
  - DYSPNOEA [None]
  - CHEST PAIN [None]
  - FEAR [None]
  - NAUSEA [None]
  - EMOTIONAL DISTRESS [None]
  - ANXIETY [None]
  - FEELING ABNORMAL [None]
  - PAIN [None]
